FAERS Safety Report 18633493 (Version 1)
Quarter: 2020Q4

REPORT INFORMATION
  Report Type: Spontaneous
  Country: US (occurrence: US)
  Receive Date: 20201218
  Receipt Date: 20201218
  Transmission Date: 20210114
  Serious: Yes (Other)
  Sender: FDA-Public Use
  Company Number: US-PFIZER INC-2020498694

PATIENT
  Age: 56 Year
  Sex: Female

DRUGS (2)
  1. XELJANZ XR [Suspect]
     Active Substance: TOFACITINIB CITRATE
     Dosage: UNK
     Dates: start: 20201115
  2. LEFLUNOMIDE. [Interacting]
     Active Substance: LEFLUNOMIDE
     Dosage: UNK

REACTIONS (2)
  - Immunosuppression [Unknown]
  - Drug interaction [Unknown]

NARRATIVE: CASE EVENT DATE: 2020
